FAERS Safety Report 10544381 (Version 1)
Quarter: 2014Q4

REPORT INFORMATION
  Report Type: Spontaneous
  Country: US (occurrence: None)
  Receive Date: 20141010
  Receipt Date: 20141010
  Transmission Date: 20150529
  Serious: Yes (Hospitalization)
  Sender: FDA-Public Use
  Company Number: 163-POMAL-14070458

PATIENT
  Age: 75 Year
  Sex: Male
  Weight: 65.77 kg

DRUGS (13)
  1. XGEVA [Concomitant]
     Active Substance: DENOSUMAB
  2. MARINOL [Concomitant]
     Active Substance: DRONABINOL
  3. POMALYST [Suspect]
     Active Substance: POMALIDOMIDE
     Indication: PLASMA CELL MYELOMA
     Dosage: 4 MG, 21 IN 21 D, PO
     Route: 048
     Dates: start: 20140618
  4. DEXAMETHASONE. [Concomitant]
     Active Substance: DEXAMETHASONE
  5. ASPIRIN (ACETYLSALICYLIC ACID) [Concomitant]
     Active Substance: ASPIRIN
  6. LIPITOR [Concomitant]
     Active Substance: ATORVASTATIN CALCIUM
  7. IMODIUM [Concomitant]
     Active Substance: LOPERAMIDE HYDROCHLORIDE
  8. CALCIUM + D (OS-CAL) [Concomitant]
  9. FLOMAX [Concomitant]
     Active Substance: TAMSULOSIN HYDROCHLORIDE
  10. PERCOCET (OXYCOCET) [Concomitant]
  11. LYRICA [Concomitant]
     Active Substance: PREGABALIN
  12. ZOFRAN (ONDANSETRON HYDROCHLORIDE) [Concomitant]
  13. PRILOSEC (OMEPRAZOLE) [Concomitant]
     Active Substance: OMEPRAZOLE MAGNESIUM

REACTIONS (4)
  - Diarrhoea [None]
  - Decreased appetite [None]
  - Pneumonia [None]
  - Neuropathy peripheral [None]
